FAERS Safety Report 12712120 (Version 3)
Quarter: 2017Q1

REPORT INFORMATION
  Report Type: Spontaneous
  Country: JP (occurrence: JP)
  Receive Date: 20160902
  Receipt Date: 20170130
  Transmission Date: 20170428
  Serious: Yes (Life-Threatening, Hospitalization, Disabling, Other)
  Sender: FDA-Public Use
  Company Number: JP-PFIZER INC-2016411129

PATIENT
  Age: 89 Year
  Sex: Female

DRUGS (8)
  1. LYRICA [Suspect]
     Active Substance: PREGABALIN
     Dosage: 50 MG, DAILY
     Route: 048
     Dates: start: 20161122
  2. LYRICA [Suspect]
     Active Substance: PREGABALIN
     Indication: HYPOAESTHESIA
     Dosage: 25 MG, 1X/DAY (IN THE MORNING)
     Route: 048
     Dates: start: 20121003
  3. LYRICA [Suspect]
     Active Substance: PREGABALIN
     Indication: SPONDYLOLISTHESIS
     Dosage: 50 MG, DAILY
     Route: 048
     Dates: start: 20130403
  4. VALSARTAN ^NICHI IKO^ [Suspect]
     Active Substance: VALSARTAN
     Dosage: 80 MG, DAILY
     Route: 048
     Dates: start: 20140725, end: 20160821
  5. LYRICA [Suspect]
     Active Substance: PREGABALIN
     Dosage: 100 MG, DAILY
     Route: 048
     Dates: start: 20161224
  6. DIOVAN [Suspect]
     Active Substance: VALSARTAN
     Dosage: 80 MG, DAILY
     Route: 048
     Dates: start: 20110504, end: 20140724
  7. LYRICA [Suspect]
     Active Substance: PREGABALIN
     Dosage: 75 MG, DAILY
     Route: 048
     Dates: start: 20140813
  8. LYRICA [Suspect]
     Active Substance: PREGABALIN
     Dosage: 125 MG, DAILY (THREE 25-MG CAPSULES IN THE MORNING AND TWO 25-MG CAPSULES IN THE EVENING)
     Route: 048
     Dates: start: 20150708, end: 20160821

REACTIONS (6)
  - Blood sodium decreased [Recovered/Resolved]
  - Blood creatinine increased [Recovered/Resolved]
  - Sinus node dysfunction [Recovered/Resolved]
  - Hyperkalaemia [Recovered/Resolved]
  - Hypoaesthesia [Unknown]
  - Condition aggravated [Unknown]

NARRATIVE: CASE EVENT DATE: 20160821
